FAERS Safety Report 20936415 (Version 2)
Quarter: 2022Q2

REPORT INFORMATION
  Report Type: Report from Study
  Country: GB (occurrence: GB)
  Receive Date: 20220609
  Receipt Date: 20220616
  Transmission Date: 20220720
  Serious: Yes (Hospitalization)
  Sender: FDA-Public Use
  Company Number: GB-CELLTRION INC.-2021GB001364

PATIENT

DRUGS (9)
  1. TRASTUZUMAB [Suspect]
     Active Substance: TRASTUZUMAB
     Indication: Breast cancer
     Dosage: 420 MILLIGRAM,EVERY 3 WEEKS; DOSE FORM: INFUSION, SOLUTION
     Route: 042
     Dates: start: 20171129, end: 20180516
  2. TRASTUZUMAB [Suspect]
     Active Substance: TRASTUZUMAB
     Dosage: 420 MILLIGRAM, EVERY 3 WEEKS;  DOSE FORM: INFUSION, SOLUTION
     Route: 042
     Dates: start: 20170815, end: 20170927
  3. TRASTUZUMAB [Suspect]
     Active Substance: TRASTUZUMAB
     Dosage: 567 MG; DOSE FORM: INFUSION, SOLUTION
     Route: 042
     Dates: start: 20170720, end: 20170720
  4. PERTUZUMAB [Suspect]
     Active Substance: PERTUZUMAB
     Indication: Breast cancer
     Dosage: 840 MILLIGRAM
     Route: 042
     Dates: start: 20170719, end: 20170719
  5. PERTUZUMAB [Suspect]
     Active Substance: PERTUZUMAB
     Dosage: 420 MILLIGRAM, EVERY 3 WEEKS
     Route: 042
     Dates: start: 20170815, end: 20170927
  6. ADO-TRASTUZUMAB EMTANSINE [Suspect]
     Active Substance: ADO-TRASTUZUMAB EMTANSINE
     Indication: Breast cancer
     Dosage: 270 MG, EVERY 3 WEEKS
     Route: 042
     Dates: start: 20171018, end: 20171108
  7. CARBOPLATIN [Suspect]
     Active Substance: CARBOPLATIN
     Indication: Breast cancer
     Dosage: 240 MILLIGRAM
     Route: 042
     Dates: start: 20171129, end: 20180530
  8. DOCETAXEL [Suspect]
     Active Substance: DOCETAXEL
     Indication: Breast cancer
     Dosage: 100 MILLIGRAM, EVERY 3 WEEKS
     Route: 042
     Dates: start: 20170720, end: 20170720
  9. EPIRUBICIN [Suspect]
     Active Substance: EPIRUBICIN
     Indication: Breast cancer
     Dosage: 45 MILLIGRAM, 1/WEEK
     Route: 042
     Dates: start: 20180815, end: 20180822

REACTIONS (1)
  - Vomiting [Recovered/Resolved]

NARRATIVE: CASE EVENT DATE: 20180827
